FAERS Safety Report 18121704 (Version 4)
Quarter: 2020Q3

REPORT INFORMATION
  Report Type: Spontaneous
  Country: IT (occurrence: IT)
  Receive Date: 20200807
  Receipt Date: 20200824
  Transmission Date: 20201103
  Serious: Yes (Other)
  Sender: FDA-Public Use
  Company Number: IT-ROCHE-2654770

PATIENT
  Sex: Female
  Weight: 54 kg

DRUGS (1)
  1. OCREVUS [Suspect]
     Active Substance: OCRELIZUMAB
     Indication: RELAPSING-REMITTING MULTIPLE SCLEROSIS
     Route: 042
     Dates: start: 20200709

REACTIONS (4)
  - Diarrhoea haemorrhagic [Unknown]
  - Asthenia [Recovered/Resolved]
  - Herpes zoster [Unknown]
  - Tachycardia [Recovered/Resolved]
